FAERS Safety Report 12444920 (Version 1)
Quarter: 2016Q2

REPORT INFORMATION
  Report Type: Spontaneous
  Country: DE (occurrence: DE)
  Receive Date: 20160607
  Receipt Date: 20160607
  Transmission Date: 20160815
  Serious: Yes (Hospitalization)
  Sender: FDA-Public Use
  Company Number: DE-ELI_LILLY_AND_COMPANY-DE201604005206

PATIENT
  Sex: Female

DRUGS (6)
  1. ZYPADHERA [Suspect]
     Active Substance: OLANZAPINE PAMOATE
     Dosage: 405 MG, EVERY TWO WEEKS
     Route: 030
     Dates: start: 20150707
  2. ZYPADHERA [Suspect]
     Active Substance: OLANZAPINE PAMOATE
     Indication: PRODUCT USED FOR UNKNOWN INDICATION
     Dosage: 300 MG, EVERY TWO WEEKS
     Route: 030
     Dates: start: 20150611
  3. AMISULPRID [Concomitant]
     Active Substance: AMISULPRIDE
     Indication: PRODUCT USED FOR UNKNOWN INDICATION
     Dosage: 300 MG, BID
     Route: 065
  4. L-THYROXIN [Concomitant]
     Active Substance: LEVOTHYROXINE SODIUM
     Indication: PRODUCT USED FOR UNKNOWN INDICATION
     Dosage: 75 UG, QD
     Route: 065
  5. DELIX                              /00885601/ [Concomitant]
     Active Substance: RAMIPRIL
     Indication: PRODUCT USED FOR UNKNOWN INDICATION
     Dosage: 5 MG, QD
     Route: 065
  6. LITHIUM CARBONATE. [Concomitant]
     Active Substance: LITHIUM CARBONATE
     Indication: PRODUCT USED FOR UNKNOWN INDICATION
     Dosage: UNK, WITH OLANZAPINE LAIM
     Route: 065

REACTIONS (10)
  - Syncope [Unknown]
  - Confusional state [Unknown]
  - Drug level increased [Recovered/Resolved]
  - Fatigue [Unknown]
  - Asthenia [Unknown]
  - Agitation [Unknown]
  - Pain in extremity [Unknown]
  - Dizziness [Unknown]
  - Overdose [Unknown]
  - Restlessness [Unknown]

NARRATIVE: CASE EVENT DATE: 20160309
